FAERS Safety Report 13007388 (Version 2)
Quarter: 2017Q2

REPORT INFORMATION
  Report Type: Spontaneous
  Country: US (occurrence: US)
  Receive Date: 20161207
  Receipt Date: 20170519
  Transmission Date: 20170830
  Serious: Yes (Other)
  Sender: FDA-Public Use
  Company Number: US-CELGENEUS-USA-2015116133

PATIENT

DRUGS (12)
  1. LEVOTHYROXINE. [Concomitant]
     Active Substance: LEVOTHYROXINE
     Indication: HYPOTHYROIDISM
     Route: 065
  2. QUINOLONES [Concomitant]
     Active Substance: UNSPECIFIED INGREDIENT
     Indication: ANTIBIOTIC PROPHYLAXIS
     Route: 065
  3. INFLUENZA [Concomitant]
     Active Substance: INFLUENZA VIRUS VACCINE
     Indication: INFLUENZA
     Route: 048
  4. DEXAMETHASONE. [Suspect]
     Active Substance: DEXAMETHASONE
     Indication: PLASMA CELL MYELOMA
     Dosage: 40 MG
     Route: 065
  5. PEMBROLIZUMAB. [Suspect]
     Active Substance: PEMBROLIZUMAB
     Dosage: 200MG
     Route: 041
  6. HYDROCORTISONE. [Concomitant]
     Active Substance: HYDROCORTISONE
     Indication: ADRENAL INSUFFICIENCY
     Route: 065
  7. PEMBROLIZUMAB. [Suspect]
     Active Substance: PEMBROLIZUMAB
     Indication: PLASMA CELL MYELOMA
     Dosage: 200MG
     Route: 041
  8. POMALYST [Suspect]
     Active Substance: POMALIDOMIDE
     Indication: PLASMA CELL MYELOMA
     Dosage: 4MG
     Route: 048
  9. DEXAMETHASONE. [Suspect]
     Active Substance: DEXAMETHASONE
     Dosage: 40 MG
     Route: 048
  10. ACYCLOVIR. [Concomitant]
     Active Substance: ACYCLOVIR
     Indication: ANTIVIRAL PROPHYLAXIS
     Route: 065
  11. ASPIRIN. [Concomitant]
     Active Substance: ASPIRIN
     Indication: THROMBOSIS PROPHYLAXIS
     Route: 065
  12. METHYLPREDNISOLONE. [Concomitant]
     Active Substance: METHYLPREDNISOLONE
     Indication: PRODUCT USED FOR UNKNOWN INDICATION
     Route: 065

REACTIONS (38)
  - Hypothyroidism [Unknown]
  - Pyrexia [Unknown]
  - Blood creatinine increased [Unknown]
  - Transaminases increased [Unknown]
  - Neutropenia [Unknown]
  - Vitiligo [Unknown]
  - Hypotension [Unknown]
  - Respiratory syncytial virus infection [Unknown]
  - Muscle spasms [Unknown]
  - Thrombocytopenia [Unknown]
  - Pneumonia [Unknown]
  - Dizziness [Unknown]
  - Diarrhoea [Unknown]
  - Hyperthyroidism [Unknown]
  - Rhinovirus infection [Unknown]
  - Influenza [Unknown]
  - Fatigue [Unknown]
  - Lymphopenia [Unknown]
  - Oedema [Unknown]
  - Nausea [Unknown]
  - Interstitial lung disease [Unknown]
  - Dyspnoea [Unknown]
  - Oedema peripheral [Unknown]
  - Neuropathy peripheral [Unknown]
  - Adrenal insufficiency [Unknown]
  - Pruritus [Unknown]
  - Rash [Unknown]
  - Palpitations [Unknown]
  - Arrhythmia [Unknown]
  - Infection [Unknown]
  - Hyperglycaemia [Unknown]
  - Hepatitis [Unknown]
  - Constipation [Unknown]
  - Autoimmune hepatitis [Unknown]
  - Upper respiratory tract infection [Unknown]
  - Hypoglycaemia [Unknown]
  - Plasma cell myeloma [Unknown]
  - Anaemia [Unknown]
